FAERS Safety Report 23995432 (Version 1)
Quarter: 2024Q2

REPORT INFORMATION
  Report Type: Spontaneous
  Country: US (occurrence: US)
  Receive Date: 20240620
  Receipt Date: 20240620
  Transmission Date: 20240716
  Serious: No
  Sender: FDA-Public Use
  Company Number: US-AMERICAN REGENT INC-2024000251

PATIENT
  Sex: Male

DRUGS (1)
  1. TESTOSTERONE CYPIONATE [Suspect]
     Active Substance: TESTOSTERONE CYPIONATE
     Indication: Product used for unknown indication
     Dosage: 0.6 MILLILITER, ONCE WEEKLY (2000MG/10ML)
     Route: 030
     Dates: start: 202312

REACTIONS (3)
  - Injection site pain [Unknown]
  - Liquid product physical issue [Unknown]
  - Product use issue [Unknown]
